FAERS Safety Report 10285965 (Version 1)
Quarter: 2014Q3

REPORT INFORMATION
  Report Type: Spontaneous
  Country: US (occurrence: None)
  Receive Date: 20140703
  Receipt Date: 20140703
  Transmission Date: 20150326
  Serious: No
  Sender: FDA-Public Use
  Company Number: None

PATIENT
  Age: 46 Year
  Sex: Female
  Weight: 72.58 kg

DRUGS (1)
  1. FLOVENT [Suspect]
     Active Substance: FLUTICASONE PROPIONATE
     Indication: ASTHMA
     Dosage: 2 PUFFS TWICE DAILY INHALATION
     Route: 055
     Dates: start: 20140613, end: 20140701

REACTIONS (1)
  - Herpes zoster [None]

NARRATIVE: CASE EVENT DATE: 20140622
